FAERS Safety Report 12569537 (Version 1)
Quarter: 2016Q3

REPORT INFORMATION
  Report Type: Spontaneous
  Country: US (occurrence: US)
  Receive Date: 20160719
  Receipt Date: 20160719
  Transmission Date: 20161109
  Serious: No
  Sender: FDA-Public Use
  Company Number: US-BAYER-2016-134574

PATIENT
  Age: 69 Year
  Sex: Female

DRUGS (1)
  1. FINACEA [Suspect]
     Active Substance: AZELAIC ACID
     Indication: RASH PUSTULAR
     Dosage: UNK UNK, UNK

REACTIONS (5)
  - Rash [None]
  - Drug ineffective [None]
  - Product physical issue [None]
  - Skin disorder [None]
  - Skin burning sensation [None]

NARRATIVE: CASE EVENT DATE: 201605
